FAERS Safety Report 17202119 (Version 1)
Quarter: 2019Q4

REPORT INFORMATION
  Report Type: Spontaneous
  Country: US (occurrence: US)
  Receive Date: 20191204
  Receipt Date: 20191204
  Transmission Date: 20200122
  Serious: Yes (Hospitalization)
  Sender: FDA-Public Use
  Company Number: None

PATIENT
  Age: 65 Year
  Sex: Male

DRUGS (5)
  1. TADALAFIL 20MG [Suspect]
     Active Substance: TADALAFIL
     Indication: HYPERTENSION
     Dosage: ?          OTHER FREQUENCY:2 TABS DAILY ;?
     Route: 048
     Dates: start: 20190516
  2. ALLOPURINOL. [Concomitant]
     Active Substance: ALLOPURINOL
  3. BUMETANIDE. [Concomitant]
     Active Substance: BUMETANIDE
  4. AMIODARONE [Concomitant]
     Active Substance: AMIODARONE
  5. ATORVASTATIN [Concomitant]
     Active Substance: ATORVASTATIN

REACTIONS (1)
  - Spinal operation [None]

NARRATIVE: CASE EVENT DATE: 20191112
